FAERS Safety Report 12550669 (Version 2)
Quarter: 2016Q4

REPORT INFORMATION
  Report Type: Spontaneous
  Country: FR (occurrence: FR)
  Receive Date: 20160712
  Receipt Date: 20161228
  Transmission Date: 20170207
  Serious: Yes (Death, Other)
  Sender: FDA-Public Use
  Company Number: FR-IMPAX LABORATORIES, INC-2016-IPXL-00746

PATIENT
  Age: 48 Year
  Sex: Female

DRUGS (4)
  1. ADRENACLICK [Suspect]
     Active Substance: EPINEPHRINE
     Indication: LOCAL ANAESTHESIA
     Dosage: 1 MG/L; UNK
     Route: 030
  2. SALINE [Concomitant]
     Active Substance: SODIUM CHLORIDE
     Indication: IRRIGATION THERAPY
     Dosage: UNK
     Route: 065
  3. ADRENACLICK [Suspect]
     Active Substance: EPINEPHRINE
     Dosage: 3MG/H UNK, UNK
     Route: 065
  4. ACEBUTOLOL [Concomitant]
     Active Substance: ACEBUTOLOL
     Indication: HYPERTENSION
     Dosage: 400 MG, DAILY
     Route: 065

REACTIONS (5)
  - Cardiogenic shock [Fatal]
  - Disseminated intravascular coagulation [Fatal]
  - Stress cardiomyopathy [Fatal]
  - Multiple organ dysfunction syndrome [Fatal]
  - Hypertension [Recovered/Resolved]
